FAERS Safety Report 11375594 (Version 3)
Quarter: 2023Q4

REPORT INFORMATION
  Report Type: Spontaneous
  Country: GR (occurrence: None)
  Receive Date: 20150813
  Receipt Date: 20231005
  Transmission Date: 20240109
  Serious: Yes (Hospitalization)
  Sender: FDA-Public Use
  Company Number: GR-EISAI MEDICAL RESEARCH-EC-2015-009480

PATIENT
  Age: 54 Year
  Sex: Female

DRUGS (18)
  1. ERIBULIN [Suspect]
     Active Substance: ERIBULIN
     Indication: Invasive ductal breast carcinoma
     Route: 041
     Dates: start: 2008, end: 2008
  2. NOVANTRONE [Suspect]
     Active Substance: MITOXANTRONE HYDROCHLORIDE
     Indication: Invasive ductal breast carcinoma
     Route: 065
  3. FLUOROURACIL [Suspect]
     Active Substance: FLUOROURACIL
     Indication: Invasive ductal breast carcinoma
     Route: 065
  4. PACLITAXEL [Suspect]
     Active Substance: PACLITAXEL
     Indication: Invasive ductal breast carcinoma
     Route: 065
     Dates: start: 2008, end: 2008
  5. BEVACIZUMAB [Suspect]
     Active Substance: BEVACIZUMAB
     Indication: Invasive ductal breast carcinoma
     Route: 065
     Dates: start: 2008, end: 2008
  6. ZOLEDRONIC ACID [Suspect]
     Active Substance: ZOLEDRONIC ACID
     Indication: Metastases to bone
     Route: 042
     Dates: start: 2008, end: 2008
  7. ZOLEDRONIC ACID [Suspect]
     Active Substance: ZOLEDRONIC ACID
     Indication: Invasive ductal breast carcinoma
  8. CAPECITABINE [Suspect]
     Active Substance: CAPECITABINE
     Indication: Invasive ductal breast carcinoma
     Route: 042
     Dates: start: 2008, end: 2008
  9. DOXORUBICIN HYDROCHLORIDE [Suspect]
     Active Substance: DOXORUBICIN HYDROCHLORIDE
     Indication: Invasive ductal breast carcinoma
     Route: 048
     Dates: start: 2008, end: 2008
  10. DOXORUBICIN HYDROCHLORIDE [Suspect]
     Active Substance: DOXORUBICIN HYDROCHLORIDE
     Indication: Metastases to bone
  11. VINORELBINE [Suspect]
     Active Substance: VINORELBINE TARTRATE
     Indication: Invasive ductal breast carcinoma
     Route: 042
     Dates: start: 2008, end: 2008
  12. INIPARIB [Suspect]
     Active Substance: INIPARIB
     Indication: Metastases to bone
     Dosage: DOSE UNKNOWN
     Route: 042
     Dates: start: 2008, end: 2008
  13. GEMCITABINE [Suspect]
     Active Substance: GEMCITABINE
     Indication: Invasive ductal breast carcinoma
     Route: 065
     Dates: start: 2008, end: 2008
  14. DOCETAXEL [Suspect]
     Active Substance: DOCETAXEL
     Indication: Invasive ductal breast carcinoma
     Route: 042
     Dates: start: 2008, end: 2008
  15. DOCETAXEL [Suspect]
     Active Substance: DOCETAXEL
     Indication: Metastases to bone
  16. CYCLOPHOSPHAMIDE [Suspect]
     Active Substance: CYCLOPHOSPHAMIDE
     Indication: Invasive ductal breast carcinoma
     Route: 042
  17. CARBOPLATIN [Suspect]
     Active Substance: CARBOPLATIN
     Indication: Invasive ductal breast carcinoma
     Dates: start: 2008, end: 2008
  18. LETROZOLE [Concomitant]
     Active Substance: LETROZOLE
     Indication: Metastases to bone
     Dosage: DOSE AND FREQUENCY UNKNOWN.

REACTIONS (1)
  - Malignant neoplasm progression [Unknown]

NARRATIVE: CASE EVENT DATE: 20080101
